FAERS Safety Report 7567966-2 (Version None)
Quarter: 2011Q2

REPORT INFORMATION
  Report Type: 
  Country: None (occurrence: None)
  Receive Date: 20110623
  Receipt Date: 20110617
  Transmission Date: 20111010
  Serious: Yes (Other)
  Sender: FDA-Public Use
  Company Number: US-BRISTOL-MYERS SQUIBB COMPANY-15841158

PATIENT
  Age: 67 Year
  Sex: Female

DRUGS (2)
  1. COUMADIN [Suspect]
     Indication: THROMBOSIS
     Dosage: SEVERAL MONTH AGO
  2. ASPIRIN [Suspect]
     Indication: THROMBOSIS
     Dosage: SEVERAL MONTH AGO

REACTIONS (2)
  - ISCHAEMIC STROKE [None]
  - INTERNATIONAL NORMALISED RATIO FLUCTUATION [None]
